FAERS Safety Report 12500993 (Version 2)
Quarter: 2016Q4

REPORT INFORMATION
  Report Type: Spontaneous
  Country: IL (occurrence: IL)
  Receive Date: 20160627
  Receipt Date: 20161205
  Transmission Date: 20170207
  Serious: Yes (Other)
  Sender: FDA-Public Use
  Company Number: IL-JNJFOC-20160615565

PATIENT

DRUGS (1)
  1. INFLIXIMAB, RECOMBINANT [Suspect]
     Active Substance: INFLIXIMAB
     Indication: INFLAMMATORY BOWEL DISEASE
     Dosage: INTENSIFIED DOSE
     Route: 042

REACTIONS (4)
  - Infusion related reaction [Unknown]
  - Therapeutic response decreased [Unknown]
  - Drug specific antibody present [Unknown]
  - Drug cross-reactivity [Unknown]
